FAERS Safety Report 10189699 (Version 1)
Quarter: 2014Q2

REPORT INFORMATION
  Report Type: Spontaneous
  Country: US (occurrence: US)
  Receive Date: 20140522
  Receipt Date: 20140522
  Transmission Date: 20141212
  Serious: Yes (Other)
  Sender: FDA-Public Use
  Company Number: US-SA-2014SA036286

PATIENT
  Age: 64 Year
  Sex: Female

DRUGS (8)
  1. LANTUS [Suspect]
     Indication: TYPE 1 DIABETES MELLITUS
     Route: 058
     Dates: start: 201401, end: 201403
  2. SOLOSTAR [Concomitant]
     Indication: DEVICE THERAPY
  3. FLUOXETINE [Concomitant]
     Indication: DEPRESSION
     Dates: start: 2004
  4. LITHIUM CARBONATE [Concomitant]
     Indication: BIPOLAR DISORDER
     Dates: start: 2004
  5. QUETIAPINE [Concomitant]
     Indication: AFFECTIVE DISORDER
     Dosage: DOSE: 25 MGX2 OR 3
     Dates: start: 2010
  6. QUETIAPINE [Concomitant]
     Indication: SLEEP DISORDER
     Dosage: DOSE: 25 MGX2 OR 3
     Dates: start: 2010
  7. LISINOPRIL [Concomitant]
     Indication: BLOOD PRESSURE
     Dates: start: 2005
  8. ATORVASTATIN [Concomitant]
     Indication: BLOOD CHOLESTEROL
     Dates: start: 2003

REACTIONS (1)
  - Cataract [Unknown]
